FAERS Safety Report 24190271 (Version 1)
Quarter: 2024Q3

REPORT INFORMATION
  Report Type: Report from Study
  Country: US (occurrence: None)
  Receive Date: 20240808
  Receipt Date: 20240808
  Transmission Date: 20241017
  Serious: Yes (Other)
  Sender: ASTRAZENECA
  Company Number: 2023A234559

PATIENT

DRUGS (1)
  1. SYMBICORT [Suspect]
     Active Substance: BUDESONIDE\FORMOTEROL FUMARATE DIHYDRATE
     Dosage: UNKNOWN UNKNOWN
     Route: 055

REACTIONS (7)
  - Neoplasm malignant [Unknown]
  - Bladder cancer [Unknown]
  - Dyspnoea [Unknown]
  - Illness [Unknown]
  - Hyperproteinaemia [Unknown]
  - Pain [Unknown]
  - Throat tightness [Unknown]
